FAERS Safety Report 17764759 (Version 1)
Quarter: 2020Q2

REPORT INFORMATION
  Report Type: Spontaneous
  Country: US (occurrence: US)
  Receive Date: 20200508
  Receipt Date: 20200508
  Transmission Date: 20200714
  Serious: Yes (Hospitalization)
  Sender: FDA-Public Use
  Company Number: None

PATIENT
  Sex: Female

DRUGS (24)
  1. MYRBETRIQ [Concomitant]
     Active Substance: MIRABEGRON
  2. PALIDERIDONE [Concomitant]
  3. AMOXICILLIN. [Concomitant]
     Active Substance: AMOXICILLIN
  4. DULOXETINE. [Concomitant]
     Active Substance: DULOXETINE
  5. TRULANCE [Concomitant]
     Active Substance: PLECANATIDE
  6. DOXYCYC MONO [Concomitant]
     Active Substance: DOXYCYCLINE
  7. CHLORHEX GLU [Concomitant]
  8. GABAPENTIN. [Concomitant]
     Active Substance: GABAPENTIN
  9. METRONIDAZOL [Concomitant]
     Active Substance: METRONIDAZOLE
  10. MIRTAZAPINE. [Concomitant]
     Active Substance: MIRTAZAPINE
  11. VENLAFAXINE [Concomitant]
     Active Substance: VENLAFAXINE HYDROCHLORIDE
  12. VRAYLAR [Concomitant]
     Active Substance: CARIPRAZINE
  13. DICYCLOMINE [Concomitant]
     Active Substance: DICYCLOMINE HYDROCHLORIDE
  14. DIVALPROEX [Concomitant]
     Active Substance: DIVALPROEX SODIUM
  15. FLUCONAZOLE. [Concomitant]
     Active Substance: FLUCONAZOLE
  16. MAGNESIUM-OX [Concomitant]
  17. INVEGA SUSTENNA [Suspect]
     Active Substance: PALIPERIDONE PALMITATE
     Indication: SCHIZOPHRENIA
     Route: 041
  18. BENZTROPINE. [Concomitant]
     Active Substance: BENZTROPINE
  19. HALOPERIDOL. [Concomitant]
     Active Substance: HALOPERIDOL
  20. HYDROXYZ HCL [Concomitant]
     Active Substance: HYDROXYZINE HYDROCHLORIDE
  21. PANTOPRAZOLE [Concomitant]
     Active Substance: PANTOPRAZOLE
  22. APAP/CODEINE [Concomitant]
     Active Substance: ACETAMINOPHEN\CODEINE PHOSPHATE
  23. ONDANSETRON [Concomitant]
     Active Substance: ONDANSETRON
  24. TRAZODONE [Concomitant]
     Active Substance: TRAZODONE HYDROCHLORIDE

REACTIONS (2)
  - Psychiatric evaluation [None]
  - Therapy interrupted [None]
